FAERS Safety Report 9369739 (Version 1)
Quarter: 2013Q2

REPORT INFORMATION
  Report Type: Spontaneous
  Country: US (occurrence: US)
  Receive Date: 20130626
  Receipt Date: 20130626
  Transmission Date: 20140414
  Serious: Yes (Death)
  Sender: FDA-Public Use
  Company Number: US-ELI_LILLY_AND_COMPANY-US201306007295

PATIENT
  Sex: Female

DRUGS (2)
  1. ALIMTA [Suspect]
     Indication: LUNG NEOPLASM MALIGNANT
     Dosage: UNK
  2. PLATINUM [Concomitant]

REACTIONS (1)
  - Interstitial lung disease [Fatal]
